FAERS Safety Report 10068830 (Version 1)
Quarter: 2014Q2

REPORT INFORMATION
  Report Type: Spontaneous
  Country: IT (occurrence: IT)
  Receive Date: 20140409
  Receipt Date: 20140409
  Transmission Date: 20141212
  Serious: Yes (Hospitalization)
  Sender: FDA-Public Use
  Company Number: IT-BAYER-2014-049304

PATIENT
  Age: 53 Year
  Sex: Male

DRUGS (16)
  1. CARDIOASPIRIN [Suspect]
     Dosage: DAILY DOSE 1 DF
     Route: 048
     Dates: start: 20131028, end: 20140228
  2. COUMADIN [Suspect]
     Indication: DEEP VEIN THROMBOSIS
     Dosage: 1 DF, PRN
     Route: 048
     Dates: start: 20140214, end: 20140228
  3. PANTOPRAZOLE [Concomitant]
     Dosage: DAILY DOSE 40 MG
     Route: 048
  4. FUROSEMIDE [Concomitant]
     Indication: HYPERTENSION
     Dosage: DAILY DOSE 150 MG
     Route: 048
  5. INSULIN [Concomitant]
     Indication: TYPE 2 DIABETES MELLITUS
     Dosage: UNK
     Route: 058
  6. ROCALTROL [Concomitant]
     Dosage: UNK
     Route: 048
  7. APROVEL [Concomitant]
     Dosage: UNK
     Route: 048
  8. TRIATEC [Concomitant]
     Dosage: DAILY DOSE 2 DF
     Route: 048
  9. CAPOTEN [Concomitant]
     Dosage: UNK
     Route: 048
  10. ESAPENT [Concomitant]
     Dosage: UNK
     Route: 048
  11. FERRO-GRAD [Concomitant]
     Indication: ANAEMIA
     Dosage: DAILY DOSE 1 DF
     Route: 048
  12. VYTORIN [Concomitant]
     Dosage: UNK
     Route: 048
  13. KAYEXALATE [Concomitant]
     Dosage: DAILY DOSE 1 DF
     Route: 048
  14. ZANEDIP [Concomitant]
     Indication: HYPERTENSION
     Dosage: DAILY DOSE 2 DF
     Route: 048
  15. PLAVIX [Concomitant]
  16. NEORECORMON [Concomitant]
     Indication: NEPHROGENIC ANAEMIA
     Dosage: UNK
     Route: 058

REACTIONS (3)
  - International normalised ratio increased [Recovering/Resolving]
  - Epistaxis [Recovering/Resolving]
  - Rectal haemorrhage [Recovering/Resolving]
